FAERS Safety Report 7301742-0 (Version None)
Quarter: 2011Q1

REPORT INFORMATION
  Report Type: 
  Country: None (occurrence: None)
  Receive Date: 20110218
  Receipt Date: 20110214
  Transmission Date: 20110831
  Serious: Yes (Hospitalization, Congenital Anomaly)
  Sender: FDA-Public Use
  Company Number: A0871555A

PATIENT
  Sex: Male
  Weight: 3.1 kg

DRUGS (2)
  1. PERCOCET [Concomitant]
  2. PAXIL [Suspect]
     Route: 064

REACTIONS (4)
  - DRUG EXPOSURE DURING PREGNANCY [None]
  - TRICUSPID VALVE DISEASE [None]
  - ATRIAL SEPTAL DEFECT [None]
  - EBSTEIN'S ANOMALY [None]
